FAERS Safety Report 8573477-8 (Version None)
Quarter: 2012Q3

REPORT INFORMATION
  Report Type: 
  Country: None (occurrence: None)
  Receive Date: 20120806
  Receipt Date: 20120725
  Transmission Date: 20120928
  Serious: Yes (Other)
  Sender: FDA-Public Use
  Company Number: JP-ELI_LILLY_AND_COMPANY-JP201205008695

PATIENT
  Age: 72 Year
  Sex: Male
  Weight: 57 kg

DRUGS (13)
  1. MITIGLINIDE [Concomitant]
     Dosage: 10 MG, TID
     Route: 048
  2. MITIGLINIDE [Concomitant]
     Dosage: 10 MG, BID
     Route: 048
  3. HUMALOG MIX 50/50 [Suspect]
     Indication: TYPE 2 DIABETES MELLITUS
     Dosage: 8 IU, EACH MORNING
     Route: 058
     Dates: start: 20080101
  4. MITIGLINIDE [Concomitant]
     Dosage: 20 MG, EACH EVENING
     Route: 048
  5. ACARBOSE [Concomitant]
     Indication: TYPE 2 DIABETES MELLITUS
     Dosage: 300 MG, QD
     Route: 048
  6. HUMULIN 70/30 [Suspect]
     Dosage: 14 UNK, EACH MORNING
     Route: 058
  7. MITIGLINIDE [Concomitant]
     Indication: TYPE 2 DIABETES MELLITUS
     Dosage: 30 MG, QD
     Route: 048
     Dates: end: 20110701
  8. HUMALOG MIX 50/50 [Suspect]
     Dosage: 2 IU, EACH EVENING
     Route: 058
     Dates: start: 20080101
  9. HUMULIN 70/30 [Suspect]
     Dosage: 3 IU, EACH EVENING
     Route: 058
     Dates: end: 20110701
  10. MITIGLINIDE [Concomitant]
     Dosage: 10 MG, BID
     Route: 048
     Dates: start: 20110701
  11. HUMULIN R [Suspect]
     Indication: TYPE 2 DIABETES MELLITUS
     Route: 058
  12. HUMULIN 70/30 [Suspect]
     Indication: TYPE 2 DIABETES MELLITUS
     Route: 058
  13. HUMALOG MIX 50/50 [Suspect]
     Dosage: 2 IU, QD
     Route: 058
     Dates: start: 20080101

REACTIONS (5)
  - DRUG HYPERSENSITIVITY [None]
  - ANTI-INSULIN ANTIBODY POSITIVE [None]
  - CEREBRAL INFARCTION [None]
  - HYPOGLYCAEMIA [None]
  - HYPERGLYCAEMIA [None]
